FAERS Safety Report 7242346-8 (Version None)
Quarter: 2011Q1

REPORT INFORMATION
  Report Type: 
  Country: None (occurrence: None)
  Receive Date: 20110125
  Receipt Date: 20110110
  Transmission Date: 20110831
  Serious: Yes (Other)
  Sender: FDA-Public Use
  Company Number: US-BIOGENIDEC-2011BI001172

PATIENT
  Age: 39 Year
  Sex: Male

DRUGS (4)
  1. AVONEX [Suspect]
     Indication: MULTIPLE SCLEROSIS
     Route: 030
     Dates: start: 20100701
  2. PAXIL [Concomitant]
     Indication: GRAND MAL CONVULSION
     Route: 048
     Dates: start: 20060101
  3. AVONEX [Suspect]
     Route: 030
     Dates: start: 20100622
  4. LAMICTAL [Concomitant]
     Indication: GRAND MAL CONVULSION
     Route: 048
     Dates: start: 20060101

REACTIONS (9)
  - TONGUE INJURY [None]
  - HYPERSENSITIVITY [None]
  - DYSPEPSIA [None]
  - CHILLS [None]
  - DIZZINESS [None]
  - TREMOR [None]
  - GRAND MAL CONVULSION [None]
  - MOBILITY DECREASED [None]
  - FEELING COLD [None]
